FAERS Safety Report 20380588 (Version 1)
Quarter: 2022Q1

REPORT INFORMATION
  Report Type: Spontaneous
  Country: DE (occurrence: DE)
  Receive Date: 20220127
  Receipt Date: 20220127
  Transmission Date: 20220423
  Serious: Yes (Other)
  Sender: FDA-Public Use
  Company Number: DE-SAMSUNG BIOEPIS-SB-2022-01689

PATIENT
  Age: 62 Year
  Sex: Male

DRUGS (1)
  1. ETANERCEPT [Suspect]
     Active Substance: ETANERCEPT
     Indication: Product used for unknown indication
     Dosage: UNKNOWN, THERAPY STARTED TWO YEARS AGO
     Route: 058

REACTIONS (4)
  - Diabetes mellitus [Unknown]
  - Pain [Unknown]
  - Device issue [Unknown]
  - Incorrect dose administered [Unknown]
